FAERS Safety Report 23038321 (Version 1)
Quarter: 2023Q4

REPORT INFORMATION
  Report Type: Spontaneous
  Country: US (occurrence: US)
  Receive Date: 20231006
  Receipt Date: 20231006
  Transmission Date: 20240110
  Serious: Yes (Other)
  Sender: FDA-Public Use
  Company Number: US-MLMSERVICE-20230918-4551425-2

PATIENT

DRUGS (2)
  1. BUPRENORPHINE\NALOXONE [Suspect]
     Active Substance: BUPRENORPHINE\NALOXONE
     Indication: Product used for unknown indication
     Route: 042
  2. FENTANYL [Suspect]
     Active Substance: FENTANYL
     Indication: Product used for unknown indication
     Dosage: TWO BAGS
     Route: 042

REACTIONS (9)
  - Anxiety [Recovering/Resolving]
  - Nausea [Recovering/Resolving]
  - Drug withdrawal syndrome [Recovering/Resolving]
  - Myalgia [Recovering/Resolving]
  - Restlessness [Recovering/Resolving]
  - Rhinorrhoea [Recovering/Resolving]
  - Yawning [Recovering/Resolving]
  - Vomiting [Recovering/Resolving]
  - Piloerection [Recovering/Resolving]
